FAERS Safety Report 10250821 (Version 1)
Quarter: 2014Q2

REPORT INFORMATION
  Report Type: Report from Study
  Country: US (occurrence: US)
  Receive Date: 20140620
  Receipt Date: 20140620
  Transmission Date: 20141212
  Serious: Yes (Hospitalization)
  Sender: FDA-Public Use
  Company Number: US-B.I. PHARMACEUTICALS,INC./RIDGEFIELD-2014-BI-27369BI

PATIENT
  Age: 85 Year
  Sex: Male
  Weight: 84.2 kg

DRUGS (4)
  1. DABIGATRAN [Suspect]
     Indication: ATRIAL FIBRILLATION
     Route: 065
  2. ELIQUIS [Suspect]
     Indication: ATRIAL FIBRILLATION
     Dosage: 10 MG
     Route: 048
     Dates: start: 20140319
  3. PLAVIX [Suspect]
     Indication: CORONARY ARTERY DISEASE
     Dosage: 75 MG
     Route: 048
     Dates: start: 20140408
  4. PLAVIX [Suspect]
     Indication: CORONARY ARTERIAL STENT INSERTION

REACTIONS (3)
  - Fall [Recovered/Resolved]
  - Anaemia [Recovered/Resolved]
  - Haematoma [Recovered/Resolved]
